FAERS Safety Report 4607339-5 (Version None)
Quarter: 2005Q1

REPORT INFORMATION
  Report Type: 
  Country: None (occurrence: None)
  Receive Date: 20050310
  Receipt Date: 20001222
  Transmission Date: 20050727
  Serious: Yes (Hospitalization)
  Sender: FDA-Public Use
  Company Number: US014765

PATIENT
  Age: 46 Year
  Sex: Male

DRUGS (5)
  1. MODAFINIL [Suspect]
     Indication: NARCOLEPSY
     Dosage: 4 TAB/CAP QD; ORAL
     Route: 048
     Dates: start: 19970101, end: 20000601
  2. MODAFINIL [Suspect]
     Indication: NARCOLEPSY
     Dosage: 5 TAB/CAP QD; ORAL
     Route: 048
     Dates: start: 20000601, end: 20001103
  3. MODAFINIL [Suspect]
     Indication: NARCOLEPSY
     Dosage: 4 TAB/CAP, QD; ORAL
     Route: 048
     Dates: end: 20001003
  4. MODAFINIL [Suspect]
     Indication: NARCOLEPSY
     Dosage: 3 TAB/CAP QD; ORAL
     Route: 048
     Dates: start: 20001104
  5. TRIVASTAL [Concomitant]

REACTIONS (2)
  - BLOOD CREATINE PHOSPHOKINASE INCREASED [None]
  - PAIN [None]
